FAERS Safety Report 5159256-2 (Version None)
Quarter: 2006Q4

REPORT INFORMATION
  Report Type: 
  Country: None (occurrence: None)
  Receive Date: 20061120
  Receipt Date: 20061102
  Transmission Date: 20070319
  Serious: Yes (Life-Threatening, Hospitalization, Other)
  Sender: FDA-Public Use
  Company Number: PAR_1085_2006

PATIENT
  Age: 31 Year
  Sex: Female

DRUGS (9)
  1. IBUPROFEN [Suspect]
     Indication: ANALGESIC EFFECT
     Dosage: DF, UNK; PO
     Route: 048
     Dates: start: 20060802, end: 20060814
  2. PREDNISOLONE [Suspect]
     Indication: HEPATITIS
     Dosage: DF, UNK; PO
     Route: 048
     Dates: start: 20060612, end: 20060618
  3. FOLIC ACID [Concomitant]
  4. LACTULOSE [Concomitant]
  5. SPIRONOLACTONE [Concomitant]
  6. THIAMINE [Concomitant]
  7. OMEPRAZOLE [Concomitant]
  8. TERLIPRESSIN [Concomitant]
  9. BENZODIAZEPINE [Concomitant]

REACTIONS (4)
  - DUODENAL ULCER [None]
  - HAEMATEMESIS [None]
  - HEPATIC ENCEPHALOPATHY [None]
  - MELAENA [None]
